FAERS Safety Report 8177586-7 (Version None)
Quarter: 2012Q1

REPORT INFORMATION
  Report Type: 
  Country: None (occurrence: None)
  Receive Date: 20120301
  Receipt Date: 20120222
  Transmission Date: 20120608
  Serious: Yes (Hospitalization)
  Sender: FDA-Public Use
  Company Number: US-NAPPMUNDI-DEU-2012-0008701

PATIENT
  Age: 29 Year
  Sex: Female

DRUGS (2)
  1. HYDROMORPHONE HCL [Suspect]
     Indication: BREAKTHROUGH PAIN
     Dosage: 40 MG, PRN
  2. MORPHINE SULFATE [Suspect]
     Indication: PAIN
     Dosage: 100 MG, BID

REACTIONS (2)
  - DRUG TOLERANCE [None]
  - HYPERAESTHESIA [None]
